FAERS Safety Report 17909640 (Version 3)
Quarter: 2020Q2

REPORT INFORMATION
  Report Type: Spontaneous
  Country: ES (occurrence: ES)
  Receive Date: 20200618
  Receipt Date: 20200630
  Transmission Date: 20200714
  Serious: Yes (Other)
  Sender: FDA-Public Use
  Company Number: ES-ALK-ABELLO A/S-2020AA001777

PATIENT

DRUGS (2)
  1. PHARMALGEN 801 [Suspect]
     Active Substance: APIS MELLIFERA
     Indication: PRODUCT USED FOR UNKNOWN INDICATION
     Dosage: 20 MICROGRAM
     Dates: start: 202006
  2. PHARMALGEN 801 [Suspect]
     Active Substance: APIS MELLIFERA
     Dosage: 50 MICROGRAM
     Dates: start: 20200608

REACTIONS (1)
  - Anaphylactic reaction [Recovered/Resolved]

NARRATIVE: CASE EVENT DATE: 20200608
